FAERS Safety Report 6396441-6 (Version None)
Quarter: 2009Q4

REPORT INFORMATION
  Report Type: 
  Country: None (occurrence: None)
  Receive Date: 20091012
  Receipt Date: 20091005
  Transmission Date: 20100525
  Serious: Yes (Other)
  Sender: FDA-Public Use
  Company Number: US-JNJFOC-20091001752

PATIENT
  Sex: Female
  Weight: 96.62 kg

DRUGS (18)
  1. FENTANYL TRANSDERMAL SYSTEM [Suspect]
     Indication: PAIN
     Route: 062
  2. TOPIRAMATE [Concomitant]
     Indication: MIGRAINE
     Route: 048
  3. DEPAKOTE ER [Concomitant]
     Indication: BIPOLAR DISORDER
     Dosage: 75 MG IN TOTAL
     Route: 048
  4. METHOTREXATE [Concomitant]
     Indication: RHEUMATOID ARTHRITIS
     Dosage: EVERY FRIDAY
     Route: 048
  5. METHADONE HYDROCHLORIDE [Concomitant]
     Indication: PAIN
     Route: 048
  6. PREDNISONE [Concomitant]
     Indication: INFLAMMATION
     Dosage: 2.5MG IN THE EVENING AND 5MG IN THE MORNING
     Route: 048
  7. ATENOLOL [Concomitant]
     Indication: HYPERTENSION
     Route: 048
  8. GABAPENTIN [Concomitant]
     Indication: MENTAL DISORDER
     Route: 048
  9. OXYBUTYNIN CHLORIDE [Concomitant]
     Indication: URINARY INCONTINENCE
     Route: 048
  10. FOLIC ACID [Concomitant]
     Indication: MEDICAL DIET
     Route: 048
  11. PRISTIQ [Concomitant]
     Indication: MENTAL DISORDER
     Route: 048
  12. LYRICA [Concomitant]
     Indication: FIBROMYALGIA
     Route: 048
  13. VITAMIN [Concomitant]
     Indication: MEDICAL DIET
     Route: 048
  14. ASCORBIC ACID [Concomitant]
     Indication: MEDICAL DIET
     Route: 048
  15. CALCIUM AND VITAMIN D [Concomitant]
     Indication: MEDICAL DIET
     Route: 048
  16. CRANBERRY PILL [Concomitant]
     Indication: URINE ABNORMALITY
     Route: 048
  17. DIPHENHYDRAMINE HCL [Concomitant]
     Indication: HYPERSENSITIVITY
     Route: 048
  18. ASPIRIN [Concomitant]
     Indication: MEDICAL DIET
     Route: 048

REACTIONS (3)
  - CONSTIPATION [None]
  - PNEUMONIA [None]
  - WRONG TECHNIQUE IN DRUG USAGE PROCESS [None]
